FAERS Safety Report 5998997-1 (Version None)
Quarter: 2008Q4

REPORT INFORMATION
  Report Type: 
  Country: None (occurrence: None)
  Receive Date: 20081213
  Receipt Date: 20080729
  Transmission Date: 20090506
  Serious: No
  Sender: FDA-Public Use
  Company Number: US-AMGEN-KDL292551

PATIENT
  Sex: Female

DRUGS (1)
  1. ENBREL [Suspect]
     Indication: RHEUMATOID ARTHRITIS
     Route: 058
     Dates: start: 20080101

REACTIONS (5)
  - ERYTHEMA [None]
  - PRURITUS [None]
  - RASH MACULAR [None]
  - SKIN ULCER [None]
  - URTICARIA [None]
